FAERS Safety Report 25409310 (Version 6)
Quarter: 2025Q3

REPORT INFORMATION
  Report Type: Spontaneous
  Country: EU (occurrence: EU)
  Receive Date: 20250607
  Receipt Date: 20250905
  Transmission Date: 20251021
  Serious: Yes (Other)
  Sender: ALEXION PHARMACEUTICALS
  Company Number: EU-AstraZeneca-CH-00884322AM

PATIENT
  Age: 81 Year
  Sex: Female
  Weight: 70 kg

DRUGS (1)
  1. XIGDUO XR [Suspect]
     Active Substance: DAPAGLIFLOZIN PROPANEDIOL\METFORMIN HYDROCHLORIDE
     Indication: Diabetes mellitus
     Dosage: 5 MILLIGRAM, BID
     Dates: start: 202303

REACTIONS (19)
  - Cerebrovascular accident [Unknown]
  - Cataract [Unknown]
  - Muscle spasms [Unknown]
  - Musculoskeletal stiffness [Unknown]
  - Fall [Unknown]
  - Headache [Unknown]
  - Balance disorder [Unknown]
  - Drug ineffective [Unknown]
  - Incontinence [Unknown]
  - Bone pain [Unknown]
  - Intentional product misuse [Unknown]
  - Eyelid ptosis [Unknown]
  - Head injury [Unknown]
  - Swelling [Unknown]
  - Scratch [Unknown]
  - Contusion [Unknown]
  - Product dose omission issue [Unknown]
  - Dry eye [Unknown]
  - Off label use [Unknown]

NARRATIVE: CASE EVENT DATE: 20241204
